FAERS Safety Report 9934050 (Version 1)
Quarter: 2014Q1

REPORT INFORMATION
  Report Type: Spontaneous
  Country: US (occurrence: US)
  Receive Date: 20140228
  Receipt Date: 20140228
  Transmission Date: 20141002
  Serious: No
  Sender: FDA-Public Use
  Company Number: US-MYLANLABS-2013S1005171

PATIENT
  Age: 59 Year
  Sex: Female
  Weight: 120.2 kg

DRUGS (3)
  1. METFORMIN HYDROCHLORIDE TABLETS USP [Suspect]
     Indication: DIABETES MELLITUS
     Route: 048
     Dates: start: 20130202, end: 20130228
  2. METFORMIN HYDROCHLORIDE TABLETS USP [Suspect]
     Indication: DIABETES MELLITUS
     Dosage: TAKES IN EVENING WITH DINNER
     Route: 048
     Dates: start: 20130301
  3. METFORMIN HYDROCHLORIDE TABLETS USP [Suspect]
     Indication: DIABETES MELLITUS
     Dosage: TAKES IN EVENING WITH DINNER
     Route: 048
     Dates: start: 20130301

REACTIONS (2)
  - Poor quality sleep [Not Recovered/Not Resolved]
  - Initial insomnia [Not Recovered/Not Resolved]
